FAERS Safety Report 9154694 (Version 3)
Quarter: 2013Q3

REPORT INFORMATION
  Report Type: Spontaneous
  Country: US (occurrence: None)
  Receive Date: 20130207
  Receipt Date: 20130806
  Transmission Date: 20140515
  Serious: Yes (Hospitalization)
  Sender: FDA-Public Use
  Company Number: CIO13004151

PATIENT
  Age: 75 Year
  Sex: Female

DRUGS (4)
  1. NYQUIL [Suspect]
     Indication: COUGH
     Dosage: UNKNOWN , UNKNOWN, ORAL
     Route: 048
  2. ROBITUSSIN [Suspect]
     Indication: COUGH
  3. PENICILLIN [Suspect]
     Indication: NASOPHARYNGITIS
  4. NEXIUM [Concomitant]

REACTIONS (4)
  - Fall [None]
  - Adverse reaction [None]
  - Apparent death [None]
  - Ill-defined disorder [None]
